FAERS Safety Report 21824083 (Version 1)
Quarter: 2023Q1

REPORT INFORMATION
  Report Type: Spontaneous
  Country: US (occurrence: None)
  Receive Date: 20230105
  Receipt Date: 20230105
  Transmission Date: 20230418
  Serious: No
  Sender: FDA-Public Use
  Company Number: 2022A400532

PATIENT

DRUGS (1)
  1. TEZSPIRE [Suspect]
     Active Substance: TEZEPELUMAB-EKKO
     Indication: Asthma
     Route: 065
     Dates: end: 20220624

REACTIONS (3)
  - Injection site streaking [Recovered/Resolved]
  - Inappropriate schedule of product administration [Recovered/Resolved]
  - Product administration error [Recovered/Resolved]
